FAERS Safety Report 5586284-5 (Version None)
Quarter: 2008Q1

REPORT INFORMATION
  Report Type: 
  Country: None (occurrence: None)
  Receive Date: 20080108
  Receipt Date: 20080108
  Transmission Date: 20080703
  Serious: Yes (Hospitalization)
  Sender: FDA-Public Use
  Company Number: None

PATIENT
  Sex: Male
  Weight: 127 kg

DRUGS (2)
  1. FENTANYL [Suspect]
     Indication: ANALGESIA
     Dosage: 50MCG EVERY 1 HOUR IV
     Route: 042
     Dates: start: 20071222, end: 20071223
  2. FENTANYL [Suspect]
     Indication: DECUBITUS ULCER
     Dosage: 50MCG EVERY 1 HOUR IV
     Route: 042
     Dates: start: 20071222, end: 20071223

REACTIONS (2)
  - INCORRECT DOSE ADMINISTERED [None]
  - MEDICATION ERROR [None]
